FAERS Safety Report 19647169 (Version 1)
Quarter: 2021Q3

REPORT INFORMATION
  Report Type: Spontaneous
  Country: CH (occurrence: CH)
  Receive Date: 20210802
  Receipt Date: 20210802
  Transmission Date: 20211014
  Serious: Yes (Other)
  Sender: FDA-Public Use
  Company Number: CH-ROCHE-2879860

PATIENT
  Sex: Female

DRUGS (7)
  1. PERFALGAN [Concomitant]
     Active Substance: ACETAMINOPHEN
     Dates: start: 20200414, end: 20200414
  2. OCREVUS [Suspect]
     Active Substance: OCRELIZUMAB
     Indication: RELAPSING MULTIPLE SCLEROSIS
     Route: 042
     Dates: start: 20200414, end: 20200414
  3. OCREVUS [Suspect]
     Active Substance: OCRELIZUMAB
     Route: 042
     Dates: start: 20201022, end: 20201022
  4. OCREVUS [Suspect]
     Active Substance: OCRELIZUMAB
     Route: 042
     Dates: start: 20210603, end: 20210603
  5. PERFALGAN [Concomitant]
     Active Substance: ACETAMINOPHEN
     Route: 041
     Dates: start: 20201022, end: 20201022
  6. TAVEGYL [Concomitant]
     Active Substance: CLEMASTINE FUMARATE
     Route: 040
     Dates: start: 20200414, end: 20200414
  7. TAVEGYL [Concomitant]
     Active Substance: CLEMASTINE FUMARATE
     Route: 040
     Dates: start: 20201022, end: 20201022

REACTIONS (1)
  - Drug-induced liver injury [Unknown]
